FAERS Safety Report 25545614 (Version 1)
Quarter: 2025Q3

REPORT INFORMATION
  Report Type: Spontaneous
  Country: JP (occurrence: JP)
  Receive Date: 20250711
  Receipt Date: 20250711
  Transmission Date: 20251021
  Serious: Yes (Hospitalization, Other)
  Sender: MERCK SHARP & DOHME LLC
  Company Number: JP-009507513-2304217

PATIENT

DRUGS (1)
  1. SUGAMMADEX SODIUM [Suspect]
     Active Substance: SUGAMMADEX SODIUM
     Indication: Product used for unknown indication
     Route: 065

REACTIONS (2)
  - Anaphylactic shock [Recovered/Resolved]
  - Cardiac arrest [Recovered/Resolved]
